FAERS Safety Report 16205980 (Version 1)
Quarter: 2019Q2

REPORT INFORMATION
  Report Type: Spontaneous
  Country: US (occurrence: US)
  Receive Date: 20190416
  Receipt Date: 20190416
  Transmission Date: 20190711
  Serious: Yes (Hospitalization)
  Sender: FDA-Public Use
  Company Number: None

PATIENT
  Age: 53 Year
  Sex: Female

DRUGS (13)
  1. VITAMIN D 50000 UNITS CAPSULES [Concomitant]
     Dates: start: 20181229
  2. TOPIRAMATE 100MG TABLETS [Concomitant]
     Dates: start: 20181229
  3. FLUOXETINE 40MG CAPSULES [Concomitant]
     Active Substance: FLUOXETINE HYDROCHLORIDE
     Dates: start: 20181020
  4. OMPERAZOLE 40MG CAPSULE [Concomitant]
     Dates: start: 20181229
  5. TIZANIDINE 4MG CAPSULE [Concomitant]
     Dates: start: 20190311
  6. HUMIRA [Suspect]
     Active Substance: ADALIMUMAB
     Indication: RHEUMATOID ARTHRITIS
     Dosage: ?          OTHER FREQUENCY:EVERY OTHER WEEK;?
     Route: 058
  7. ESTRADIOL 2MG TABLETS [Concomitant]
     Dates: start: 20180531
  8. DESVENLAFAXINE 100MG TABLETS ER [Concomitant]
     Dates: start: 20190220
  9. HYDROMORPHONE 4MG TABLETS [Concomitant]
     Dates: start: 20190312
  10. CYANOCABALALAM 1000 MCG INJECTION [Concomitant]
     Dates: start: 20180531
  11. LEVOTHYROXINE 88MCG TABLETS [Concomitant]
     Dates: start: 20190328
  12. PAROXETINE 40MG TABLETS [Concomitant]
     Active Substance: PAROXETINE
     Dates: start: 20190220
  13. GABAPENTIN 300 MG CAPSULES [Concomitant]
     Active Substance: GABAPENTIN
     Dates: start: 20181207

REACTIONS (2)
  - Peripheral swelling [None]
  - Drug hypersensitivity [None]

NARRATIVE: CASE EVENT DATE: 20190330
